FAERS Safety Report 13715056 (Version 2)
Quarter: 2017Q3

REPORT INFORMATION
  Report Type: Spontaneous
  Country: US (occurrence: US)
  Receive Date: 20170704
  Receipt Date: 20170922
  Transmission Date: 20171127
  Serious: Yes (Other)
  Sender: FDA-Public Use
  Company Number: US-JNJFOC-20170605185

PATIENT
  Age: 69 Year
  Sex: Female

DRUGS (6)
  1. INVOKANA [Suspect]
     Active Substance: CANAGLIFLOZIN
     Indication: GLYCOSYLATED HAEMOGLOBIN INCREASED
     Route: 048
  2. LANTUS [Concomitant]
     Active Substance: INSULIN GLARGINE
     Indication: DIABETES MELLITUS
     Route: 065
     Dates: end: 201705
  3. GLIPIZIDE. [Concomitant]
     Active Substance: GLIPIZIDE
     Route: 048
  4. ASPIRIN. [Concomitant]
     Active Substance: ASPIRIN
     Route: 065
  5. INVOKANA [Suspect]
     Active Substance: CANAGLIFLOZIN
     Indication: GLYCOSYLATED HAEMOGLOBIN INCREASED
     Route: 048
     Dates: start: 20170509, end: 20170512
  6. METFORMIN [Concomitant]
     Active Substance: METFORMIN HYDROCHLORIDE
     Route: 048

REACTIONS (6)
  - Skin disorder [Not Recovered/Not Resolved]
  - Cystitis [Recovering/Resolving]
  - Dysuria [Recovering/Resolving]
  - Hepatic pain [Recovering/Resolving]
  - Urinary tract infection [Recovering/Resolving]
  - Rash [Recovering/Resolving]

NARRATIVE: CASE EVENT DATE: 20170508
